FAERS Safety Report 23227494 (Version 2)
Quarter: 2023Q4

REPORT INFORMATION
  Report Type: Spontaneous
  Country: US (occurrence: US)
  Receive Date: 20231124
  Receipt Date: 20231213
  Transmission Date: 20240109
  Serious: Yes (Hospitalization)
  Sender: FDA-Public Use
  Company Number: US-BAUSCHBL-2023BNL011803

PATIENT
  Age: 12 Year
  Sex: Male
  Weight: 30 kg

DRUGS (2)
  1. ATROPINE [Suspect]
     Active Substance: ATROPINE\ATROPINE SULFATE
     Indication: Eye injury
     Dosage: 1 DROP INTO HIS LEFT EYE
     Route: 047
  2. PREDNISOLONE [Concomitant]
     Active Substance: PREDNISOLONE
     Indication: Eye injury
     Dosage: 1 DROP INTO THE LEFT EYE 4 TIMES DAILY
     Route: 047

REACTIONS (2)
  - Anticholinergic syndrome [Recovered/Resolved]
  - Overdose [Recovered/Resolved]
